FAERS Safety Report 18775814 (Version 1)
Quarter: 2021Q1

REPORT INFORMATION
  Report Type: Report from Study
  Country: CO (occurrence: CO)
  Receive Date: 20210122
  Receipt Date: 20210122
  Transmission Date: 20210419
  Serious: Yes (Death, Hospitalization)
  Sender: FDA-Public Use
  Company Number: NVSC2020CO210923

PATIENT
  Age: 85 Year
  Sex: Male
  Weight: 75 kg

DRUGS (5)
  1. CALCIUM [Concomitant]
     Active Substance: CALCIUM
     Indication: BONE DISORDER
     Dosage: UNK UNK, QD (15 YEARS AGO)
     Route: 048
     Dates: end: 202011
  2. ESOMEPRAZOLE. [Concomitant]
     Active Substance: ESOMEPRAZOLE MAGNESIUM
     Indication: GASTRITIS
     Dosage: UNK, QD, (15 YEARS AGO
     Route: 048
  3. REVOLADE [Suspect]
     Active Substance: ELTROMBOPAG OLAMINE
     Indication: IMMUNE THROMBOCYTOPENIA
     Dosage: 50 MG, QD
     Route: 048
     Dates: end: 202011
  4. PREDNISOLONE. [Concomitant]
     Active Substance: PREDNISOLONE
     Indication: IMMUNE THROMBOCYTOPENIA
     Dosage: 50 MG, QD, (2 YEARS AGO)
     Route: 048
     Dates: end: 202011
  5. LEVOTHYROXINE. [Concomitant]
     Active Substance: LEVOTHYROXINE
     Indication: HYPERTHYROIDISM
     Dosage: 50 MG, QD, (15 YEARS AGO)
     Route: 048
     Dates: end: 202011

REACTIONS (7)
  - SARS-CoV-2 test positive [Unknown]
  - Respiratory arrest [Fatal]
  - Dyspnoea [Unknown]
  - Chills [Unknown]
  - Platelet count decreased [Unknown]
  - Petechiae [Unknown]
  - Blood pressure increased [Unknown]

NARRATIVE: CASE EVENT DATE: 20201209
